FAERS Safety Report 16639776 (Version 1)
Quarter: 2019Q3

REPORT INFORMATION
  Report Type: Spontaneous
  Country: GB (occurrence: GB)
  Receive Date: 20190727
  Receipt Date: 20190727
  Transmission Date: 20191004
  Serious: Yes (Other)
  Sender: FDA-Public Use
  Company Number: GB-TEVA-2019-GB-1083931

PATIENT
  Age: 68 Year
  Sex: Female
  Weight: 74 kg

DRUGS (16)
  1. PREDNISOLONE. [Concomitant]
     Active Substance: PREDNISOLONE
     Dosage: IN THE MORNING.
     Dates: start: 20171010
  2. EUMOVATE [Concomitant]
     Active Substance: CLOBETASONE BUTYRATE
     Dosage: APPLY.
     Dates: start: 20190606, end: 20190607
  3. OVESTIN [Concomitant]
     Active Substance: ESTRIOL
     Dosage: AT NIGHT.
     Dates: start: 20190606
  4. FLUCONAZOLE. [Suspect]
     Active Substance: FLUCONAZOLE
     Dates: start: 20190409
  5. DERMOVATE [Concomitant]
     Active Substance: CLOBETASOL
     Dosage: APPLY 1 TO 2 TIMES PER DAY.
     Dates: start: 20150609
  6. RANITIDINE. [Concomitant]
     Active Substance: RANITIDINE
     Dates: start: 20181205
  7. GYNO-PEVARYL [Concomitant]
     Active Substance: ECONAZOLE NITRATE
     Dosage: APPLY.
     Dates: start: 20190606, end: 20190613
  8. METOPROLOL TARTRATE. [Concomitant]
     Active Substance: METOPROLOL TARTRATE
     Dosage: TAKE HALF OR ONE, TWICE DAILY.
     Dates: start: 20180806
  9. ECONAZOLE. [Concomitant]
     Active Substance: ECONAZOLE NITRATE
     Dosage: INSERT AT NIGHT.
     Dates: start: 20190610, end: 20190613
  10. DOUBLEBASE [Concomitant]
     Active Substance: ISOPROPYL MYRISTATE\PARAFFIN
     Dosage: USE AS NEEDED.
     Dates: start: 20180516, end: 20190611
  11. CETIRIZINE [Concomitant]
     Active Substance: CETIRIZINE HYDROCHLORIDE
     Dates: start: 20190308
  12. ZOPICLONE [Concomitant]
     Active Substance: ZOPICLONE
     Dosage: AT NIGHT.
     Dates: start: 20190308
  13. CLOTRIMAZOLE. [Concomitant]
     Active Substance: CLOTRIMAZOLE
     Dosage: USE AS DIRECTED.
     Dates: start: 20190508, end: 20190522
  14. CINNARIZINE [Concomitant]
     Active Substance: CINNARIZINE
     Dosage: TAKE ONE OR TWO, AT NIGHT.
     Dates: start: 20190308
  15. BISOPROLOL [Concomitant]
     Active Substance: BISOPROLOL
     Dates: start: 20190625
  16. NITROFURANTOIN. [Concomitant]
     Active Substance: NITROFURANTOIN
     Dates: start: 20170208

REACTIONS (1)
  - Rash erythematous [Recovered/Resolved]

NARRATIVE: CASE EVENT DATE: 20190625
